FAERS Safety Report 20742610 (Version 1)
Quarter: 2022Q2

REPORT INFORMATION
  Report Type: Spontaneous
  Country: US (occurrence: US)
  Receive Date: 20220424
  Receipt Date: 20220424
  Transmission Date: 20220721
  Serious: No
  Sender: FDA-Public Use
  Company Number: US-SA-2022SA131369

PATIENT
  Age: 68 Year
  Sex: Female
  Weight: 99.7 kg

DRUGS (19)
  1. DUPIXENT [Suspect]
     Active Substance: DUPILUMAB
     Indication: Eczema
     Dosage: UNK
  2. DUPIXENT [Suspect]
     Active Substance: DUPILUMAB
     Indication: Pruritus
  3. DUPIXENT [Suspect]
     Active Substance: DUPILUMAB
     Indication: Rash
  4. TRIAMCINOLONE ACETONIDE [Concomitant]
     Active Substance: TRIAMCINOLONE ACETONIDE
  5. SKLICE [Concomitant]
     Active Substance: IVERMECTIN
     Dosage: UNK
  6. PERMETHRIN [Concomitant]
     Active Substance: PERMETHRIN
  7. PIMECROLIMUS [Concomitant]
     Active Substance: PIMECROLIMUS
     Dosage: UNK
  8. ALLEGRA [FEXOFENADINE HYDROCHLORIDE] [Concomitant]
     Dosage: UNK
  9. SINGULAIR [Concomitant]
     Active Substance: MONTELUKAST SODIUM
  10. XYZAL [Concomitant]
     Active Substance: LEVOCETIRIZINE DIHYDROCHLORIDE
     Dosage: UNK
  11. ZYRTEC [Concomitant]
     Active Substance: CETIRIZINE HYDROCHLORIDE
  12. BENADRYL [Concomitant]
     Active Substance: DIPHENHYDRAMINE HYDROCHLORIDE
  13. CALAMINE [Concomitant]
     Active Substance: CALAMINE\FERRIC OXIDE RED\ZINC OXIDE
  14. GRAMICIDIN\NEOMYCIN SULFATE\POLYMYXIN B SULFATE [Concomitant]
     Active Substance: GRAMICIDIN\NEOMYCIN SULFATE\POLYMYXIN B SULFATE
  15. CLOBETASOL PROPIONATE [Concomitant]
     Active Substance: CLOBETASOL PROPIONATE
     Dosage: UNK
  16. TACROLIMUS [Concomitant]
     Active Substance: TACROLIMUS
     Dosage: UNK
  17. BETAMETHASONE\CLOTRIMAZOLE [Concomitant]
     Active Substance: BETAMETHASONE\CLOTRIMAZOLE
     Dosage: UNK
  18. CORDRAN [Concomitant]
     Active Substance: FLURANDRENOLIDE
     Dosage: UNK
  19. BENADRYL [Concomitant]
     Active Substance: DIPHENHYDRAMINE HYDROCHLORIDE

REACTIONS (1)
  - Product use in unapproved indication [Unknown]
